FAERS Safety Report 5154319-X (Version None)
Quarter: 2006Q4

REPORT INFORMATION
  Report Type: 
  Country: None (occurrence: None)
  Receive Date: 20061114
  Receipt Date: 20061103
  Transmission Date: 20070319
  Serious: Yes (Hospitalization, Other)
  Sender: FDA-Public Use
  Company Number: FR-2005-009116

PATIENT
  Age: 47 Year
  Sex: Female
  Weight: 72 kg

DRUGS (1)
  1. MIRENA [Suspect]
     Dosage: 20 UG/DAY, CONT, INTRA-UTERINE
     Route: 015
     Dates: start: 20021217, end: 20050513

REACTIONS (4)
  - ADENOMYOSIS [None]
  - ENDOMETRIAL CANCER STAGE II [None]
  - OVARIAN CYST [None]
  - UTERINE POLYP [None]
